FAERS Safety Report 16780490 (Version 1)
Quarter: 2019Q3

REPORT INFORMATION
  Report Type: Spontaneous
  Country: US (occurrence: US)
  Receive Date: 20190906
  Receipt Date: 20190906
  Transmission Date: 20191005
  Serious: Yes (Death)
  Sender: FDA-Public Use
  Company Number: US-PFIZER INC-2019381271

PATIENT
  Age: 25 Year
  Sex: Female

DRUGS (3)
  1. METRONIDAZOLE. [Suspect]
     Active Substance: METRONIDAZOLE
     Indication: STREPTOCOCCAL SEPSIS
     Dosage: 500 MG, 3X/DAY
  2. CEFEPIME HCL [Suspect]
     Active Substance: CEFEPIME HYDROCHLORIDE
     Indication: STREPTOCOCCAL SEPSIS
     Dosage: 1 G, 2X/DAY
  3. VANCOMYCIN HCL [Suspect]
     Active Substance: VANCOMYCIN HYDROCHLORIDE
     Indication: STREPTOCOCCAL SEPSIS
     Dosage: 2 G, DAILY

REACTIONS (4)
  - Drug ineffective [Fatal]
  - Brain death [Fatal]
  - Sepsis [Fatal]
  - Anoxia [Fatal]
